FAERS Safety Report 14293038 (Version 2)
Quarter: 2018Q1

REPORT INFORMATION
  Report Type: Spontaneous
  Country: GB (occurrence: GB)
  Receive Date: 20171215
  Receipt Date: 20180116
  Transmission Date: 20180509
  Serious: Yes (Hospitalization, Other)
  Sender: FDA-Public Use
  Company Number: GB-TEVA-2017-GB-833218

PATIENT
  Age: 74 Year

DRUGS (2)
  1. DICLOFENAC SODIUM. [Suspect]
     Active Substance: DICLOFENAC SODIUM
     Dosage: 75MG/3ML?IN ONE LITRE OF COMPOUND SODIUM LACTATE INTRAVENOUS FLUID.
     Route: 042
     Dates: start: 20170914
  2. SODIUM LACTATE. [Suspect]
     Active Substance: SODIUM LACTATE
     Route: 042
     Dates: start: 20170914

REACTIONS (3)
  - Oxygen saturation decreased [Unknown]
  - Blood pressure decreased [Unknown]
  - Tachycardia [Unknown]

NARRATIVE: CASE EVENT DATE: 20170914
